FAERS Safety Report 6263723-8 (Version None)
Quarter: 2009Q3

REPORT INFORMATION
  Report Type: 
  Country: None (occurrence: None)
  Receive Date: 20090710
  Receipt Date: 20090609
  Transmission Date: 20100115
  Serious: No
  Sender: FDA-Public Use
  Company Number: US-BAYER-200911790BCC

PATIENT
  Age: 82 Year
  Sex: Female

DRUGS (1)
  1. ALEVE [Suspect]
     Indication: CARPAL TUNNEL DECOMPRESSION
     Route: 048
     Dates: start: 20080101

REACTIONS (1)
  - CONSTIPATION [None]
